FAERS Safety Report 13021618 (Version 2)
Quarter: 2017Q1

REPORT INFORMATION
  Report Type: Spontaneous
  Country: US (occurrence: US)
  Receive Date: 20161213
  Receipt Date: 20170110
  Transmission Date: 20170428
  Serious: Yes (Hospitalization)
  Sender: FDA-Public Use
  Company Number: US-ASTRAZENECA-2016SF29339

PATIENT
  Age: 33 Year
  Sex: Female

DRUGS (4)
  1. GLIMEPIRIDE. [Concomitant]
     Active Substance: GLIMEPIRIDE
     Indication: ILL-DEFINED DISORDER
  2. LANTUS [Concomitant]
     Active Substance: INSULIN GLARGINE
  3. FORXIGA [Suspect]
     Active Substance: DAPAGLIFLOZIN
     Indication: ILL-DEFINED DISORDER
     Dosage: UNKNOWN
     Route: 048
  4. METFORMIN [Concomitant]
     Active Substance: METFORMIN HYDROCHLORIDE

REACTIONS (1)
  - Diabetic ketoacidosis [Recovered/Resolved]
